FAERS Safety Report 10844289 (Version 2)
Quarter: 2015Q1

REPORT INFORMATION
  Report Type: Spontaneous
  Country: FR (occurrence: FR)
  Receive Date: 20150220
  Receipt Date: 20150304
  Transmission Date: 20150721
  Serious: Yes (Hospitalization)
  Sender: FDA-Public Use
  Company Number: FR-PFIZER INC-2015057889

PATIENT
  Age: 57 Year
  Sex: Female

DRUGS (2)
  1. ADVIL [Suspect]
     Active Substance: IBUPROFEN
     Indication: ODYNOPHAGIA
  2. ADVIL [Suspect]
     Active Substance: IBUPROFEN
     Indication: EAR PAIN
     Dosage: UNK
     Route: 048
     Dates: start: 20141231, end: 20150102

REACTIONS (1)
  - Cellulitis [Recovered/Resolved]

NARRATIVE: CASE EVENT DATE: 20150103
